FAERS Safety Report 7967158-9 (Version None)
Quarter: 2011Q4

REPORT INFORMATION
  Report Type: 
  Country: None (occurrence: None)
  Receive Date: 20111208
  Receipt Date: 20111208
  Transmission Date: 20120403
  Serious: Yes (Other)
  Sender: FDA-Public Use
  Company Number: None

PATIENT
  Age: 62 Year
  Sex: Male
  Weight: 63.5036 kg

DRUGS (1)
  1. PROPECIA [Suspect]
     Indication: ANDROGENETIC ALOPECIA
     Dosage: PER RX DAILY
     Dates: start: 20100304, end: 20100601

REACTIONS (4)
  - SEXUAL DYSFUNCTION [None]
  - SEMEN VOLUME DECREASED [None]
  - MARITAL PROBLEM [None]
  - LOSS OF LIBIDO [None]
